FAERS Safety Report 8053613-2 (Version None)
Quarter: 2012Q1

REPORT INFORMATION
  Report Type: 
  Country: None (occurrence: None)
  Receive Date: 20120118
  Receipt Date: 20120109
  Transmission Date: 20120608
  Serious: Yes (Hospitalization, Other)
  Sender: FDA-Public Use
  Company Number: US-BAYER-2011-038269

PATIENT
  Age: 37 Year
  Sex: Female
  Weight: 56.689 kg

DRUGS (2)
  1. MOTRIN [Concomitant]
     Dosage: UNK
     Dates: start: 20080701
  2. YASMIN [Suspect]
     Indication: PRODUCT USED FOR UNKNOWN INDICATION
     Dosage: UNK
     Route: 048
     Dates: start: 20070315, end: 20080121

REACTIONS (11)
  - INJURY [None]
  - CHOLECYSTITIS CHRONIC [None]
  - DEEP VEIN THROMBOSIS [None]
  - ANXIETY [None]
  - PAIN [None]
  - BILIARY DYSKINESIA [None]
  - FEAR [None]
  - GALLBLADDER INJURY [None]
  - ANHEDONIA [None]
  - ABDOMINAL PAIN [None]
  - QUALITY OF LIFE DECREASED [None]
